FAERS Safety Report 7286495-7 (Version None)
Quarter: 2011Q1

REPORT INFORMATION
  Report Type: 
  Country: None (occurrence: None)
  Receive Date: 20110210
  Receipt Date: 20110201
  Transmission Date: 20110831
  Serious: Yes (Other)
  Sender: FDA-Public Use
  Company Number: US-ROCHE-743700

PATIENT
  Sex: Female
  Weight: 10.9 kg

DRUGS (4)
  1. RITUXAN [Concomitant]
     Dosage: LAST DOSE: AUG 2008, FEB 2009, AUG 2009
     Route: 042
  2. ACTEMRA [Suspect]
     Dosage: FORM: INFUSION
     Route: 042
     Dates: start: 20100809
  3. LOVASTATIN [Concomitant]
     Dosage: FREQUENCY: QD
     Route: 048
  4. HYDROCODONE BITARTRATE [Concomitant]
     Indication: PAIN
     Dosage: FREQUENCY: QHS; DOSE: 5/325
     Route: 048

REACTIONS (1)
  - PULMONARY EMBOLISM [None]
